FAERS Safety Report 6217759-3 (Version None)
Quarter: 2009Q2

REPORT INFORMATION
  Report Type: 
  Country: None (occurrence: None)
  Receive Date: 20090604
  Receipt Date: 20090604
  Transmission Date: 20091009
  Serious: Yes (Hospitalization)
  Sender: FDA-Public Use
  Company Number: None

PATIENT
  Age: 77 Year
  Sex: Male
  Weight: 73 kg

DRUGS (10)
  1. ZOLEDRONIC ACID [Suspect]
     Indication: PROSTATE CANCER
     Dosage: 4MG CHEMO REGIMEN IV
     Route: 042
     Dates: start: 20080101
  2. HYDROCODONE BITARTRATE [Concomitant]
  3. CELECOXIB [Concomitant]
  4. PERIDEX [Concomitant]
  5. DEXAMETHASONE [Concomitant]
  6. ESOMEPRAZOLE MAGNESIUM [Concomitant]
  7. MORPHINE [Concomitant]
  8. M.V.I. [Concomitant]
  9. NIFEDIPINE [Concomitant]
  10. ZOLPIDEM TARTRATE [Concomitant]

REACTIONS (2)
  - OSTEOMYELITIS [None]
  - OSTEONECROSIS [None]
